FAERS Safety Report 13848048 (Version 2)
Quarter: 2020Q1

REPORT INFORMATION
  Report Type: Spontaneous
  Country: US (occurrence: US)
  Receive Date: 20170809
  Receipt Date: 20200329
  Transmission Date: 20200409
  Serious: Yes (Death)
  Sender: FDA-Public Use
  Company Number: US-BIOGEN-2014BI123517

PATIENT
  Age: 17 Year
  Sex: Female

DRUGS (2)
  1. TYSABRI [Suspect]
     Active Substance: NATALIZUMAB
     Indication: MULTIPLE SCLEROSIS
     Dosage: INFUSED OVER 1 HOUR
     Route: 042
     Dates: start: 20131025, end: 20141027
  2. TYSABRI [Suspect]
     Active Substance: NATALIZUMAB
     Dosage: INFUSED OVER 1 HOUR
     Route: 042
     Dates: end: 20141120

REACTIONS (4)
  - Product administered to patient of inappropriate age [Unknown]
  - Urinary tract infection [Fatal]
  - Sepsis [Fatal]
  - Multiple sclerosis relapse [Fatal]

NARRATIVE: CASE EVENT DATE: 201409
